FAERS Safety Report 4287667-6 (Version None)
Quarter: 2004Q1

REPORT INFORMATION
  Report Type: 
  Country: None (occurrence: None)
  Receive Date: 20040209
  Receipt Date: 20030822
  Transmission Date: 20041129
  Serious: No
  Sender: FDA-Public Use
  Company Number: US-GLAXOSMITHKLINE-A0423130A

PATIENT
  Age: 37 Year
  Sex: Female

DRUGS (1)
  1. PAXIL [Suspect]
     Indication: DEPRESSION
     Dosage: 37.5MG PER DAY
     Route: 048
     Dates: start: 20030201, end: 20030601

REACTIONS (5)
  - ANOREXIA [None]
  - FLAT AFFECT [None]
  - HYPERHIDROSIS [None]
  - SEXUAL DYSFUNCTION [None]
  - WEIGHT DECREASED [None]
